FAERS Safety Report 7859942-7 (Version None)
Quarter: 2011Q4

REPORT INFORMATION
  Report Type: 
  Country: None (occurrence: None)
  Receive Date: 20111021
  Receipt Date: 20111014
  Transmission Date: 20120403
  Serious: Yes (Hospitalization)
  Sender: FDA-Public Use
  Company Number: 20110029453

PATIENT
  Age: 56 Year
  Sex: Female
  Weight: 107 kg

DRUGS (17)
  1. NEXIUM [Concomitant]
  2. CARAFATE [Concomitant]
  3. PATANASE (OLOPATADINE) [Concomitant]
  4. HIZENTRA [Suspect]
     Dosage: SUBCUTANEOUS
     Route: 058
     Dates: start: 20110622
  5. SYNTHROID [Concomitant]
  6. VERAPAMIL [Concomitant]
  7. PROVENTIL [Concomitant]
  8. XOPENEX [Concomitant]
  9. HIZENTRA [Suspect]
     Dosage: (10 G 1X/WEEK, 4 SITES OVER 1.5 HOURS SUBCUTANEOUS)
     Route: 058
     Dates: start: 20110726
  10. ACIPHEX [Concomitant]
  11. ESTER-C (CALCIUM ASCORBATE) [Concomitant]
  12. HIZENTRA [Suspect]
     Dosage: (10 G 1X/WEEK, (50 ML) 4 SITES OVER 1.5 HOURS SUBCUTANEOUS
     Route: 058
     Dates: start: 20110920
  13. CIPRO [Concomitant]
  14. ATROVENT [Concomitant]
  15. VERAMYST (FLUTICASONE) [Concomitant]
  16. ZEGRID (OMEPRAZOLE) [Concomitant]
  17. QVAR [Concomitant]

REACTIONS (2)
  - LYMPHADENOPATHY [None]
  - LYMPH NODE PAIN [None]
